FAERS Safety Report 15018640 (Version 1)
Quarter: 2018Q2

REPORT INFORMATION
  Report Type: Spontaneous
  Country: US (occurrence: US)
  Receive Date: 20180523
  Receipt Date: 20180523
  Transmission Date: 20180711
  Serious: Yes (Other)
  Sender: FDA-Public Use
  Company Number: None

PATIENT
  Age: 65 Year
  Sex: Female

DRUGS (6)
  1. METHYLPHENIDATE. [Concomitant]
     Active Substance: METHYLPHENIDATE
  2. SERTRALINE [Concomitant]
     Active Substance: SERTRALINE HYDROCHLORIDE
  3. CUPRIMINE [Suspect]
     Active Substance: PENICILLAMINE
     Indication: SYSTEMIC SCLERODERMA
     Route: 048
     Dates: start: 20171130
  4. ALBUTEROL. [Concomitant]
     Active Substance: ALBUTEROL
  5. ZOLPIDEM [Concomitant]
     Active Substance: ZOLPIDEM\ZOLPIDEM TARTRATE
  6. DEXAMETHASONE. [Concomitant]
     Active Substance: DEXAMETHASONE

REACTIONS (2)
  - Drug dose omission [None]
  - Nausea [None]

NARRATIVE: CASE EVENT DATE: 201804
